FAERS Safety Report 10761331 (Version 1)
Quarter: 2015Q1

REPORT INFORMATION
  Report Type: Spontaneous
  Country: US (occurrence: None)
  Receive Date: 20150203
  Receipt Date: 20150203
  Transmission Date: 20150721
  Serious: Yes (Disabling)
  Sender: FDA-Public Use
  Company Number: None

PATIENT
  Age: 61 Year
  Sex: Male
  Weight: 86.18 kg

DRUGS (1)
  1. ENBREL [Suspect]
     Active Substance: ETANERCEPT
     Indication: ANKYLOSING SPONDYLITIS
     Dates: start: 20131101, end: 20150201

REACTIONS (3)
  - Exercise tolerance decreased [None]
  - Fatigue [None]
  - Sleep apnoea syndrome [None]

NARRATIVE: CASE EVENT DATE: 20140101
